FAERS Safety Report 9261021 (Version 1)
Quarter: 2013Q2

REPORT INFORMATION
  Report Type: Spontaneous
  Country: US (occurrence: US)
  Receive Date: 20130429
  Receipt Date: 20130429
  Transmission Date: 20140414
  Serious: No
  Sender: FDA-Public Use
  Company Number: US-AMGEN-USASP2012048430

PATIENT
  Age: 56 Year
  Sex: Female
  Weight: 64.5 kg

DRUGS (1)
  1. SENSIPAR [Suspect]
     Indication: HYPERPARATHYROIDISM SECONDARY
     Dosage: 30 UNK, UNK
     Route: 048
     Dates: start: 20120501, end: 20120601

REACTIONS (1)
  - Pain [Recovering/Resolving]
